FAERS Safety Report 10482552 (Version 1)
Quarter: 2014Q3

REPORT INFORMATION
  Report Type: Report from Study
  Country: DK (occurrence: DK)
  Receive Date: 20140929
  Receipt Date: 20140929
  Transmission Date: 20150326
  Serious: Yes (Death)
  Sender: FDA-Public Use
  Company Number: DK-BAXTER-2014BAX058113

PATIENT

DRUGS (7)
  1. FLUDARABINE [Suspect]
     Active Substance: FLUDARABINE PHOSPHATE
     Indication: CHRONIC LYMPHOCYTIC LEUKAEMIA
     Dosage: 6 28-DAY COURSES, ON DAYS 1 THROUGH 3
     Route: 048
  2. ACYCLOVIR. [Suspect]
     Active Substance: ACYCLOVIR
     Indication: INFECTION PROPHYLAXIS
     Dosage: DURING AND UNTIL 3 MONTHS AFTER THE END OF TREATMENT
     Route: 065
  3. ALEMTUZUMAB [Suspect]
     Active Substance: ALEMTUZUMAB
     Indication: CHRONIC LYMPHOCYTIC LEUKAEMIA
     Dosage: WAS GIVEN IN THE FIRST CYCLE AT DAYS -1, 0
     Route: 058
  4. SENDOXAN TABL 50 MG [Suspect]
     Active Substance: CYCLOPHOSPHAMIDE
     Indication: CHRONIC LYMPHOCYTIC LEUKAEMIA
     Dosage: 6 28-DAY COURSES, ON DAYS 1 THROUGH 3
     Route: 048
  5. COTRIMOXAZOLE [Suspect]
     Active Substance: SULFAMETHOXAZOLE\TRIMETHOPRIM
     Indication: ANTIFUNGAL PROPHYLAXIS
     Dosage: 400/80 MG UNTIL AT LEAST 3 MONTHS AFTER THE END OF TREATMENT
     Route: 065
  6. VALACYCLOVIR [Suspect]
     Active Substance: VALACYCLOVIR HYDROCHLORIDE
     Indication: INFECTION PROPHYLAXIS
     Dosage: DURING AND UNTIL 3 MONTHS AFTER THE END OF TREATMENT
     Route: 065
  7. ALEMTUZUMAB [Suspect]
     Active Substance: ALEMTUZUMAB
     Dosage: WAS GIVEN AT DAY 1 ONLY
     Route: 058

REACTIONS (1)
  - Death [Fatal]
